FAERS Safety Report 7415241-9 (Version None)
Quarter: 2011Q2

REPORT INFORMATION
  Report Type: 
  Country: None (occurrence: None)
  Receive Date: 20110414
  Receipt Date: 20110322
  Transmission Date: 20111010
  Serious: Yes (Hospitalization, Other)
  Sender: FDA-Public Use
  Company Number: US-BAYER-201012538NA

PATIENT
  Age: 29 Year
  Sex: Female
  Weight: 74.83 kg

DRUGS (6)
  1. YAZ [Suspect]
     Indication: PREMENSTRUAL SYNDROME
     Dosage: 1 DF (DAILY DOSE), QD, ORAL
     Route: 048
  2. YAZ [Suspect]
     Indication: DYSMENORRHOEA
  3. YASMIN [Suspect]
     Indication: DYSMENORRHOEA
  4. YASMIN [Suspect]
     Indication: ABDOMINAL DISTENSION
  5. YAZ [Suspect]
     Indication: ABDOMINAL DISTENSION
  6. YASMIN [Suspect]
     Indication: PREMENSTRUAL SYNDROME
     Dosage: 1 DF (DAILY DOSE), QD, ORAL
     Route: 048
     Dates: start: 20060501, end: 20060611

REACTIONS (5)
  - DEPRESSION [None]
  - PULMONARY EMBOLISM [None]
  - ANXIETY DISORDER [None]
  - INSOMNIA [None]
  - POST-TRAUMATIC STRESS DISORDER [None]
